FAERS Safety Report 8153300-6 (Version None)
Quarter: 2012Q1

REPORT INFORMATION
  Report Type: 
  Country: None (occurrence: None)
  Receive Date: 20120103
  Receipt Date: 20111030
  Transmission Date: 20120608
  Serious: No
  Sender: FDA-Public Use
  Company Number: AE-2011-002890

PATIENT
  Age: 50 Year
  Sex: Female
  Weight: 65.318 kg

DRUGS (6)
  1. PEGINTERFERON (PEGINTERFERON ALFA-2A) [Concomitant]
  2. RIBAVIRIN [Concomitant]
  3. LORAZEPAM [Concomitant]
  4. ZOLOFT [Concomitant]
  5. INCIVEK [Suspect]
     Dosage: (3 IN 1 D),ORAL
     Route: 048
     Dates: start: 20111018
  6. ALEVE [Concomitant]

REACTIONS (3)
  - DRY SKIN [None]
  - VERTIGO [None]
  - DYSPNOEA [None]
